FAERS Safety Report 6687552-6 (Version None)
Quarter: 2010Q2

REPORT INFORMATION
  Report Type: 
  Country: None (occurrence: None)
  Receive Date: 20100419
  Receipt Date: 20100412
  Transmission Date: 20101027
  Serious: Yes (Other)
  Sender: FDA-Public Use
  Company Number: US-MERCK-0902USA03059

PATIENT
  Age: 54 Year
  Sex: Female
  Weight: 75 kg

DRUGS (4)
  1. FOSAMAX [Suspect]
     Indication: OSTEOPOROSIS
     Route: 048
     Dates: start: 20000420, end: 20051201
  2. FOSAMAX [Suspect]
     Route: 048
     Dates: start: 20000420, end: 20051201
  3. FOSAMAX [Suspect]
     Route: 048
     Dates: end: 20070101
  4. PREMPRO [Concomitant]
     Route: 065
     Dates: start: 20000420, end: 20020222

REACTIONS (22)
  - ARTHRALGIA [None]
  - ATTENTION DEFICIT/HYPERACTIVITY DISORDER [None]
  - BLOOD CHOLESTEROL INCREASED [None]
  - BREAST CANCER [None]
  - DENTAL CARIES [None]
  - DENTAL FISTULA [None]
  - DERMATITIS CONTACT [None]
  - DRY MOUTH [None]
  - FEMUR FRACTURE [None]
  - GINGIVITIS [None]
  - HEART RATE IRREGULAR [None]
  - LOOSE TOOTH [None]
  - MALAISE [None]
  - MYOCARDIAL INFARCTION [None]
  - ORAL TORUS [None]
  - OSTEONECROSIS [None]
  - PAIN IN EXTREMITY [None]
  - PETECHIAE [None]
  - TOOTH DISORDER [None]
  - URINARY TRACT INFECTION [None]
  - VARICOSE VEIN [None]
  - VIRAL UPPER RESPIRATORY TRACT INFECTION [None]
